FAERS Safety Report 5201342-2 (Version None)
Quarter: 2006Q4

REPORT INFORMATION
  Report Type: 
  Country: None (occurrence: None)
  Receive Date: 20061016
  Receipt Date: 20011119
  Transmission Date: 20070319
  Serious: Yes (Hospitalization, Other)
  Sender: FDA-Public Use
  Company Number: PHEH2001US09104

PATIENT
  Age: 74 Year
  Sex: Female

DRUGS (3)
  1. MIACALCIN [Suspect]
     Indication: OSTEOPOROSIS
     Dosage: 200 IU, QD, INTRANASAL
     Dates: start: 20010702
  2. VIACTIV (CALCIUM) [Concomitant]
  3. DICLOFENAC (DICLOFENAC) [Concomitant]

REACTIONS (4)
  - PAIN [None]
  - SWELLING [None]
  - THROMBOPHLEBITIS [None]
  - THROMBOSIS [None]
